FAERS Safety Report 24805835 (Version 2)
Quarter: 2025Q1

REPORT INFORMATION
  Report Type: Spontaneous
  Country: IT (occurrence: IT)
  Receive Date: 20250103
  Receipt Date: 20250103
  Transmission Date: 20250409
  Serious: Yes (Other)
  Sender: PFIZER
  Company Number: None

PATIENT
  Age: 63 Year
  Sex: Male

DRUGS (2)
  1. XELJANZ [Suspect]
     Active Substance: TOFACITINIB CITRATE
     Indication: Colitis ulcerative
     Dosage: 10 MG, 1X/DAY
     Route: 048
     Dates: start: 20210624, end: 20220113
  2. ASACOL [Concomitant]
     Active Substance: MESALAMINE
     Dosage: 500 MG, 1X/DAY
     Route: 054
     Dates: start: 20211126, end: 20220113

REACTIONS (5)
  - Haematochezia [Unknown]
  - Rectal tenesmus [Unknown]
  - Flatulence [Unknown]
  - Faecal calprotectin increased [Unknown]
  - Off label use [Unknown]

NARRATIVE: CASE EVENT DATE: 20210624
